FAERS Safety Report 11158880 (Version 1)
Quarter: 2015Q2

REPORT INFORMATION
  Report Type: Spontaneous
  Country: DE (occurrence: DE)
  Receive Date: 20150603
  Receipt Date: 20150603
  Transmission Date: 20150821
  Serious: Yes (Other)
  Sender: FDA-Public Use
  Company Number: DE-PFIZER INC-2015182306

PATIENT
  Sex: Male
  Weight: 98 kg

DRUGS (8)
  1. LONOLOX [Suspect]
     Active Substance: MINOXIDIL
     Dosage: 15 MG, DAILY, 10 MG IN MORNING, 5 MG EVENING^
  2. FUROSEMIDE. [Concomitant]
     Active Substance: FUROSEMIDE
  3. CLONIDINE. [Concomitant]
     Active Substance: CLONIDINE
     Dosage: 250 ?G 2 X DAILY
  4. TORASEMID [Concomitant]
     Active Substance: TORSEMIDE
     Dosage: 2X10 MG, UNK
  5. LONOLOX [Suspect]
     Active Substance: MINOXIDIL
     Dosage: 2.5 MG, UNK
     Dates: start: 201412
  6. NEBIVOLON [Concomitant]
     Dosage: 7.5 MG, DAILY (1 TABLET 5 MG IN THE MORNING, 1/2 TABLET IN THE EVENING)
  7. LERCANIDIPINA [Concomitant]
     Dosage: 1.5 DF, DAILY (HALF A TABLET MORNING, WHOLE TABLET EVENING)
  8. DOXAZOSIN [Concomitant]
     Active Substance: DOXAZOSIN\DOXAZOSIN MESYLATE
     Dosage: 0.5 DF, 2X/DAY (A HALF TABLET IN THE MORNING AND EVENING)

REACTIONS (9)
  - Diabetes mellitus [Unknown]
  - Heart rate increased [Unknown]
  - Blood pressure inadequately controlled [Unknown]
  - Insomnia [Unknown]
  - Weight increased [Unknown]
  - Nasal dryness [Unknown]
  - Renal disorder [Unknown]
  - Oedema peripheral [Unknown]
  - Dry mouth [Unknown]
